FAERS Safety Report 5032880-3 (Version None)
Quarter: 2006Q2

REPORT INFORMATION
  Report Type: 
  Country: None (occurrence: None)
  Receive Date: 20060622
  Receipt Date: 20060619
  Transmission Date: 20061013
  Serious: Yes (Hospitalization, Other)
  Sender: FDA-Public Use
  Company Number: GB-GLAXOSMITHKLINE-B0428424A

PATIENT
  Age: 72 Year
  Sex: Female

DRUGS (5)
  1. DIGOXIN [Suspect]
     Indication: ATRIAL FIBRILLATION
     Route: 048
     Dates: start: 20060510, end: 20060524
  2. VERAPAMIL [Suspect]
     Indication: ATRIAL FIBRILLATION
     Route: 048
  3. LISINOPRIL [Concomitant]
  4. TAMSULOSIN HCL [Concomitant]
  5. ZOPICLONE [Concomitant]

REACTIONS (2)
  - BRADYCARDIA [None]
  - HEART RATE DECREASED [None]
